FAERS Safety Report 12791835 (Version 1)
Quarter: 2016Q3

REPORT INFORMATION
  Report Type: Spontaneous
  Country: US (occurrence: US)
  Receive Date: 20160929
  Receipt Date: 20160929
  Transmission Date: 20161109
  Serious: No
  Sender: FDA-Public Use
  Company Number: US-LEO PHARMA-244093

PATIENT
  Sex: Female

DRUGS (2)
  1. PICATO [Suspect]
     Active Substance: INGENOL MEBUTATE
     Indication: ACTINIC KERATOSIS
     Route: 061
     Dates: start: 20160917
  2. PICATO [Suspect]
     Active Substance: INGENOL MEBUTATE
     Indication: ACTINIC CHEILITIS

REACTIONS (6)
  - Application site scab [Not Recovered/Not Resolved]
  - Application site vesicles [Recovering/Resolving]
  - Drug administered at inappropriate site [Unknown]
  - Inappropriate schedule of drug administration [Unknown]
  - Product use issue [Unknown]
  - Application site pain [Not Recovered/Not Resolved]

NARRATIVE: CASE EVENT DATE: 20160917
